FAERS Safety Report 12105968 (Version 1)
Quarter: 2016Q1

REPORT INFORMATION
  Report Type: Spontaneous
  Country: US (occurrence: US)
  Receive Date: 20160223
  Receipt Date: 20160223
  Transmission Date: 20160526
  Serious: No
  Sender: FDA-Public Use
  Company Number: US-ASTRAZENECA-2016SE16802

PATIENT
  Sex: Female

DRUGS (1)
  1. RHINOCORT [Suspect]
     Active Substance: BUDESONIDE
     Indication: MULTIPLE ALLERGIES
     Route: 045

REACTIONS (7)
  - Sinusitis [Unknown]
  - Oropharyngeal pain [Unknown]
  - Drug dose omission [Unknown]
  - Headache [Unknown]
  - Epistaxis [Unknown]
  - Hypersensitivity [Unknown]
  - Drug ineffective [Unknown]
